FAERS Safety Report 4845306-7 (Version None)
Quarter: 2005Q4

REPORT INFORMATION
  Report Type: 
  Country: None (occurrence: None)
  Receive Date: 20051205
  Receipt Date: 20050906
  Transmission Date: 20060501
  Serious: Yes (Hospitalization)
  Sender: FDA-Public Use
  Company Number: FR-LMS-050076

PATIENT
  Age: 21 Year
  Sex: Female

DRUGS (1)
  1. NABUCOX [Suspect]
     Dosage: 1G TWICE PER DAY
     Route: 048
     Dates: start: 20050523, end: 20050524

REACTIONS (3)
  - OLIGURIA [None]
  - RENAL FAILURE ACUTE [None]
  - VOMITING [None]
